FAERS Safety Report 20875011 (Version 1)
Quarter: 2022Q2

REPORT INFORMATION
  Report Type: Spontaneous
  Country: US (occurrence: US)
  Receive Date: 20220526
  Receipt Date: 20220526
  Transmission Date: 20220721
  Serious: Yes (Life-Threatening, Hospitalization, Other)
  Sender: FDA-Public Use
  Company Number: None

PATIENT
  Age: 69 Year
  Sex: Male

DRUGS (15)
  1. VANCOMYCIN [Suspect]
     Active Substance: VANCOMYCIN
     Indication: Clostridium difficile colitis
     Dosage: 1500 MILLIGRAM
     Route: 042
  2. VANCOMYCIN [Suspect]
     Active Substance: VANCOMYCIN
     Dosage: 125 MILLIGRAM, EVERY 6 HRS
     Route: 048
  3. VANCOMYCIN [Suspect]
     Active Substance: VANCOMYCIN
     Dosage: 125 MILLIGRAM, EVERY 8 HOURS
     Route: 048
  4. VANCOMYCIN [Suspect]
     Active Substance: VANCOMYCIN
     Dosage: 250 MILLIGRAM, EVERY 6 HRS
     Route: 048
  5. VANCOMYCIN [Suspect]
     Active Substance: VANCOMYCIN
     Dosage: UNK, EVERY 6 HRS
     Route: 054
  6. METRONIDAZOLE [Concomitant]
     Active Substance: METRONIDAZOLE
     Indication: Clostridium difficile colitis
     Dosage: 500 MILLIGRAM, ONCE
     Route: 042
  7. METRONIDAZOLE [Concomitant]
     Active Substance: METRONIDAZOLE
     Dosage: 500 MILLIGRAM, EVERY 8 HOURS
     Route: 042
  8. CIPROFLOXACIN [Concomitant]
     Active Substance: CIPROFLOXACIN
     Indication: Evidence based treatment
     Dosage: 400 MILLIGRAM, ONCE
     Route: 042
  9. METHYLCELLULOSES [Concomitant]
     Active Substance: METHYLCELLULOSES
     Indication: Product used for unknown indication
     Dosage: 2 GRAM IN 240 ML OF WATER, PER DAY
     Route: 048
  10. BIFIDOBACTERIUM ANIMALIS LACTIS [Concomitant]
     Active Substance: BIFIDOBACTERIUM ANIMALIS LACTIS
     Indication: Product used for unknown indication
     Dosage: 1 DOSAGE FORM, PER DAY
     Route: 048
  11. DICYCLOMINE CO [Concomitant]
     Indication: Abdominal pain
     Dosage: 10 MILLIGRAM, 21 HOURS
     Route: 048
  12. DICYCLOMINE CO [Concomitant]
     Dosage: 10 MILLIGRAM, EVERY 6 HRS, BEFORE MEALS AS NEEDED
     Route: 048
  13. SODIUM CHLORIDE [Concomitant]
     Active Substance: SODIUM CHLORIDE
     Indication: Product used for unknown indication
     Dosage: 4 LITER
     Route: 040
  14. SODIUM CHLORIDE [Concomitant]
     Active Substance: SODIUM CHLORIDE
     Dosage: 100 MILLILITER
     Route: 054
  15. CALCIUM POLYCARBOPHIL [Concomitant]
     Active Substance: CALCIUM POLYCARBOPHIL
     Indication: Product used for unknown indication
     Dosage: 625 MILLIGRAM, PER DAY
     Route: 048

REACTIONS (1)
  - Treatment failure [Unknown]
